FAERS Safety Report 4533308-X (Version None)
Quarter: 2004Q4

REPORT INFORMATION
  Report Type: 
  Country: None (occurrence: None)
  Receive Date: 20041206
  Receipt Date: 20040913
  Transmission Date: 20050328
  Serious: No
  Sender: FDA-Public Use
  Company Number: USA040978065

PATIENT
  Age: 77 Year
  Sex: Female

DRUGS (6)
  1. CYMBALTA [Suspect]
     Indication: DEPRESSION
     Dosage: 60 MG DAY
     Dates: start: 20040912
  2. ALTACE [Concomitant]
  3. CARDIZEM [Concomitant]
  4. VICODIN [Concomitant]
  5. PREMARIN [Concomitant]
  6. PRILOSEC [Concomitant]

REACTIONS (2)
  - INSOMNIA [None]
  - NAUSEA [None]
